FAERS Safety Report 21565724 (Version 1)
Quarter: 2022Q4

REPORT INFORMATION
  Report Type: Spontaneous
  Country: US (occurrence: US)
  Receive Date: 20221108
  Receipt Date: 20221108
  Transmission Date: 20230113
  Serious: Yes (Other)
  Sender: FDA-Public Use
  Company Number: US-Accord-284854

PATIENT
  Age: 63 Year
  Sex: Female
  Weight: 52.16 kg

DRUGS (2)
  1. SPIRONOLACTONE [Suspect]
     Active Substance: SPIRONOLACTONE
     Indication: Acne
     Dosage: 25MG, DAILY AS NEEDED
     Route: 048
     Dates: start: 2014
  2. LOSARTAN [Suspect]
     Active Substance: LOSARTAN
     Indication: Blood pressure measurement

REACTIONS (4)
  - Product odour abnormal [Unknown]
  - Coeliac disease [Not Recovered/Not Resolved]
  - Blood pressure systolic decreased [Unknown]
  - Off label use [Unknown]

NARRATIVE: CASE EVENT DATE: 20220801
